FAERS Safety Report 13209005 (Version 1)
Quarter: 2017Q1

REPORT INFORMATION
  Report Type: Spontaneous
  Country: US (occurrence: US)
  Receive Date: 20170209
  Receipt Date: 20170209
  Transmission Date: 20170428
  Serious: No
  Sender: FDA-Public Use
  Company Number: US-PERRIGO-16US020378

PATIENT
  Sex: Female

DRUGS (4)
  1. PERMETHRIN. [Suspect]
     Active Substance: PERMETHRIN
     Dosage: 60 ML, EVERY 3 TO 5 DAYS
     Route: 061
     Dates: start: 201609, end: 201609
  2. PERMETHRIN. [Suspect]
     Active Substance: PERMETHRIN
     Indication: LICE INFESTATION
     Dosage: 60 ML, TWICE IN 7 TO 10 DAYS
     Route: 061
     Dates: start: 201609, end: 201609
  3. PERMETHRIN. [Suspect]
     Active Substance: PERMETHRIN
     Dosage: 60 ML, EVERY 3 TO 5 DAYS
     Route: 061
     Dates: start: 201609, end: 201609
  4. PIPERONYL BUTOXIDE W/PYRETHRINS [Concomitant]
     Indication: LICE INFESTATION
     Dosage: UNKNOWN, UNKNOWN
     Route: 061
     Dates: start: 201609, end: 201609

REACTIONS (2)
  - Wrong technique in product usage process [Recovered/Resolved]
  - Inappropriate schedule of drug administration [Recovered/Resolved]

NARRATIVE: CASE EVENT DATE: 201609
